FAERS Safety Report 12725247 (Version 1)
Quarter: 2016Q3

REPORT INFORMATION
  Report Type: Spontaneous
  Country: US (occurrence: US)
  Receive Date: 20160908
  Receipt Date: 20160908
  Transmission Date: 20161109
  Serious: Yes (Other)
  Sender: FDA-Public Use
  Company Number: US-PFIZER INC-2016416695

PATIENT
  Age: 56 Year
  Sex: Male
  Weight: 148 kg

DRUGS (5)
  1. PREDNISONE. [Concomitant]
     Active Substance: PREDNISONE
     Indication: PAIN
     Dosage: 4 MG, UNK
     Route: 048
     Dates: start: 20160830
  2. SOMAVERT [Suspect]
     Active Substance: PEGVISOMANT
     Dosage: 330 MG, WEEKLY, 4X/WEEK 60MG AND 3X/WEEK 30MG
  3. SOMAVERT [Suspect]
     Active Substance: PEGVISOMANT
     Indication: PITUITARY TUMOUR
     Dosage: 270 MG, WEEKLY, 7 INJECTIONS PER WEEK, 30 MG EVERY DAY AND 2X/WEEK 60MG
  4. RAMIPRIL. [Concomitant]
     Active Substance: RAMIPRIL
     Indication: BLOOD PRESSURE ABNORMAL
     Dosage: 0.5 MG, 1X/DAY
     Route: 048
  5. ASPIRIN. [Concomitant]
     Active Substance: ASPIRIN
     Indication: PROPHYLAXIS
     Dosage: 325 MG, 1X/DAY

REACTIONS (3)
  - Arthropathy [Unknown]
  - Blood growth hormone increased [Unknown]
  - Arthralgia [Unknown]
